FAERS Safety Report 8542056-0 (Version None)
Quarter: 2012Q3

REPORT INFORMATION
  Report Type: 
  Country: None (occurrence: None)
  Receive Date: 20120726
  Receipt Date: 20120713
  Transmission Date: 20120928
  Serious: Yes (Other)
  Sender: FDA-Public Use
  Company Number: US-ENDO PHARMACEUTICALS INC.-OPCR20120806

PATIENT
  Sex: Female
  Weight: 61.744 kg

DRUGS (14)
  1. HEROIN [Suspect]
     Indication: DRUG ABUSE
     Dosage: UNKNOWN
     Route: 065
  2. ADDERALL XR 10 [Concomitant]
     Indication: ATTENTION DEFICIT/HYPERACTIVITY DISORDER
     Route: 048
  3. MIRALAX [Concomitant]
     Indication: CONSTIPATION
     Route: 048
  4. VALIUM [Concomitant]
     Indication: INSOMNIA
     Route: 048
  5. ADDERALL 5 [Concomitant]
     Indication: ATTENTION DEFICIT/HYPERACTIVITY DISORDER
     Route: 048
  6. OXYCODONE HCL [Concomitant]
     Indication: PAIN
     Route: 048
     Dates: end: 20120101
  7. OPANA ER [Suspect]
     Indication: PAIN
     Route: 048
     Dates: start: 20120427, end: 20120509
  8. LOESTRIN 1.5/30 [Concomitant]
     Indication: MENSTRUATION IRREGULAR
     Route: 048
  9. OXYCODONE HCL [Concomitant]
     Route: 048
     Dates: start: 20120101
  10. BUPROPION HCL [Concomitant]
     Indication: DEPRESSION
  11. METHADONE [Suspect]
     Indication: DRUG ABUSE
     Dosage: UNKNOWN
     Route: 065
  12. BUPROPION HCL [Concomitant]
     Indication: ANXIETY
     Route: 048
  13. OPANA [Concomitant]
     Indication: PRODUCT USED FOR UNKNOWN INDICATION
     Dosage: UNKNOWN
     Route: 048
  14. PHENYTOIN [Concomitant]
     Indication: PAIN
     Route: 048

REACTIONS (2)
  - DRUG INEFFECTIVE [None]
  - DRUG ABUSE [None]
